FAERS Safety Report 15394511 (Version 3)
Quarter: 2018Q4

REPORT INFORMATION
  Report Type: Spontaneous
  Country: US (occurrence: US)
  Receive Date: 20180918
  Receipt Date: 20181025
  Transmission Date: 20190204
  Serious: No
  Sender: FDA-Public Use
  Company Number: US-JNJFOC-20180904839

PATIENT
  Sex: Female

DRUGS (2)
  1. GALANTAMINE HYDROBROMIDE. [Suspect]
     Active Substance: GALANTAMINE HYDROBROMIDE
     Indication: DEMENTIA
     Route: 065
  2. RAZADYNE [Suspect]
     Active Substance: GALANTAMINE HYDROBROMIDE
     Indication: DEMENTIA
     Route: 048

REACTIONS (4)
  - Drug ineffective [Unknown]
  - Product dose omission [Unknown]
  - Cognitive disorder [Unknown]
  - Product availability issue [Unknown]
